FAERS Safety Report 21660664 (Version 1)
Quarter: 2022Q4

REPORT INFORMATION
  Report Type: Spontaneous
  Country: FR (occurrence: FR)
  Receive Date: 20221130
  Receipt Date: 20221130
  Transmission Date: 20230112
  Serious: Yes (Other)
  Sender: FDA-Public Use
  Company Number: None

PATIENT
  Age: 40 Year
  Sex: Male

DRUGS (9)
  1. CLONAZEPAM [Suspect]
     Active Substance: CLONAZEPAM
  2. MIDAZOLAM [Suspect]
     Active Substance: MIDAZOLAM
  3. COCAINE [Suspect]
     Active Substance: COCAINE
  4. CANNABIS SATIVA SUBSP. INDICA TOP [Suspect]
     Active Substance: CANNABIS SATIVA SUBSP. INDICA TOP
  5. ABILIFY [Suspect]
     Active Substance: ARIPIPRAZOLE
  6. CODEINE [Suspect]
     Active Substance: CODEINE
  7. NEFOPAM [Suspect]
     Active Substance: NEFOPAM
  8. METOCLOPRAMIDE [Suspect]
     Active Substance: METOCLOPRAMIDE
  9. HYDROXYZINE [Suspect]
     Active Substance: HYDROXYZINE HYDROCHLORIDE

REACTIONS (7)
  - Drug abuse [Unknown]
  - Confusional state [Recovered/Resolved]
  - Miosis [Recovered/Resolved]
  - Fall [Recovering/Resolving]
  - Altered state of consciousness [Recovered/Resolved]
  - Pain in extremity [Unknown]
  - Anxiety [Unknown]
